FAERS Safety Report 6264685-X (Version None)
Quarter: 2009Q3

REPORT INFORMATION
  Report Type: 
  Country: None (occurrence: None)
  Receive Date: 20090710
  Receipt Date: 20090630
  Transmission Date: 20100115
  Serious: Yes (Other)
  Sender: FDA-Public Use
  Company Number: US-ELI_LILLY_AND_COMPANY-US200907000504

PATIENT
  Age: 48 Year
  Sex: Female

DRUGS (1)
  1. GEMCITABINE HCL [Suspect]
     Indication: THYMOMA MALIGNANT
     Dosage: 1000 MG/M2, BIWEEKLY

REACTIONS (2)
  - OFF LABEL USE [None]
  - THROMBOTIC MICROANGIOPATHY [None]
